FAERS Safety Report 11742687 (Version 4)
Quarter: 2015Q4

REPORT INFORMATION
  Report Type: Spontaneous
  Country: ZA (occurrence: ZA)
  Receive Date: 20151116
  Receipt Date: 20151130
  Transmission Date: 20160304
  Serious: Yes (Hospitalization, Other)
  Sender: FDA-Public Use
  Company Number: ZA-SA-2015SA182900

PATIENT
  Sex: Female

DRUGS (3)
  1. CEREZYME [Suspect]
     Active Substance: IMIGLUCERASE
     Indication: GAUCHER^S DISEASE
     Route: 041
  2. CEREZYME [Suspect]
     Active Substance: IMIGLUCERASE
     Indication: GAUCHER^S DISEASE
     Route: 041
  3. CEREZYME [Suspect]
     Active Substance: IMIGLUCERASE
     Indication: GAUCHER^S DISEASE
     Route: 041

REACTIONS (9)
  - Fatigue [Unknown]
  - Splenomegaly [Unknown]
  - Bone density decreased [Unknown]
  - Pneumonia [Unknown]
  - Chest pain [Unknown]
  - Weight decreased [Unknown]
  - Vomiting [Unknown]
  - Loss of consciousness [Unknown]
  - Nausea [Unknown]
